FAERS Safety Report 7162183-2 (Version None)
Quarter: 2010Q4

REPORT INFORMATION
  Report Type: 
  Country: None (occurrence: None)
  Receive Date: 20101201
  Receipt Date: 20101112
  Transmission Date: 20110411
  Serious: Yes (Hospitalization, Other)
  Sender: FDA-Public Use
  Company Number: AE10-0048

PATIENT
  Sex: Male
  Weight: 86.4556 kg

DRUGS (2)
  1. NAPROXEN/ESOMEPRAZOLE MAGNESIUM [Suspect]
     Indication: INVESTIGATION
     Dosage: 500/20 MG, ORAL
     Route: 048
     Dates: start: 20100820
  2. VIMOVO [Suspect]
     Indication: INVESTIGATION
     Dosage: 500/20 MG, ORAL
     Route: 048
     Dates: start: 20100827

REACTIONS (1)
  - APPENDICITIS [None]
